FAERS Safety Report 9664144 (Version 2)
Quarter: 2013Q4

REPORT INFORMATION
  Report Type: Spontaneous
  Country: JP (occurrence: JP)
  Receive Date: 20131101
  Receipt Date: 20131113
  Transmission Date: 20140711
  Serious: Yes (Other)
  Sender: FDA-Public Use
  Company Number: JP-B.I. PHARMACEUTICALS,INC./RIDGEFIELD-2013-BI-35095YA

PATIENT
  Age: 64 Year
  Sex: Male

DRUGS (10)
  1. HARNAL (TAMSULOSIN) ORODISPERSABLE CR [Suspect]
     Dosage: 0.2 MG
     Route: 048
     Dates: start: 20130501
  2. ZOLPIDEM [Suspect]
     Dosage: 10 MG
     Route: 048
     Dates: start: 20130328
  3. TERBINAFINE HYDROCHLORIDE [Suspect]
     Indication: ONYCHOMYCOSIS
     Route: 048
     Dates: start: 20130828
  4. OLMETEC (OLMESARTAN MEDOXOMIL) TABLET [Concomitant]
     Dates: start: 20130208
  5. ALLELOCK (OLOPATADINE HYDROCHLORIDE) PER ORAL NOS [Concomitant]
     Route: 048
     Dates: start: 20130531
  6. FEBURIC (FEBUXOSTAT) TABLET [Concomitant]
     Dates: start: 20130126
  7. EBASTEL (EBASTINE) TABLET [Concomitant]
  8. LOXONIN (LOXOPROFEN SODIUM) PER ORAL NOS [Concomitant]
     Route: 048
     Dates: start: 20130328
  9. DEPAS (ETIZOLAM) PER ORAL NOS [Concomitant]
     Route: 048
     Dates: start: 20130328
  10. ALFAROL (ALFACALCIDOL) [Concomitant]
     Route: 048

REACTIONS (1)
  - Platelet count decreased [Unknown]
